FAERS Safety Report 8618683-9 (Version None)
Quarter: 2012Q3

REPORT INFORMATION
  Report Type: 
  Country: None (occurrence: None)
  Receive Date: 20120814
  Receipt Date: 20120814
  Transmission Date: 20120928
  Serious: Yes (Other)
  Sender: FDA-Public Use
  Company Number: None

PATIENT
  Age: 33 Year
  Sex: Female
  Weight: 84.369 kg

DRUGS (2)
  1. FLUCONAZOLE [Suspect]
  2. FLOCONAZOLE [Concomitant]

REACTIONS (2)
  - HEART RATE IRREGULAR [None]
  - DIZZINESS [None]
